FAERS Safety Report 6441577-4 (Version None)
Quarter: 2009Q4

REPORT INFORMATION
  Report Type: 
  Country: None (occurrence: None)
  Receive Date: 20091116
  Receipt Date: 20091105
  Transmission Date: 20100525
  Serious: Yes (Hospitalization, Other)
  Sender: FDA-Public Use
  Company Number: US-JNJFOC-20091102226

PATIENT
  Sex: Female

DRUGS (1)
  1. DOXIL [Suspect]
     Indication: LIPOSARCOMA
     Dosage: 3 CYCLES ADMINISTERED
     Route: 042

REACTIONS (4)
  - ARTHRALGIA [None]
  - BACK PAIN [None]
  - LIPOSARCOMA [None]
  - OFF LABEL USE [None]
